FAERS Safety Report 6070341-3 (Version None)
Quarter: 2009Q1

REPORT INFORMATION
  Report Type: 
  Country: None (occurrence: None)
  Receive Date: 20090130
  Receipt Date: 20090130
  Transmission Date: 20090719
  Serious: Yes (Hospitalization)
  Sender: FDA-Public Use
  Company Number: None

PATIENT
  Sex: Female
  Weight: 58.9676 kg

DRUGS (6)
  1. VIOXX [Suspect]
     Indication: ASTHMA
  2. DYRENIUM [Suspect]
     Indication: ASTHMA
  3. SEREVENT [Suspect]
     Indication: ASTHMA
  4. ADVAIR DISKUS 100/50 [Concomitant]
  5. SPIRIVA [Concomitant]
  6. COLCHICINE [Concomitant]

REACTIONS (7)
  - BLOOD POTASSIUM DECREASED [None]
  - DIARRHOEA [None]
  - DRY MOUTH [None]
  - METAMORPHOPSIA [None]
  - NASAL CONGESTION [None]
  - SUPRAVENTRICULAR TACHYCARDIA [None]
  - TRANSIENT ISCHAEMIC ATTACK [None]
